FAERS Safety Report 10751764 (Version 1)
Quarter: 2015Q1

REPORT INFORMATION
  Report Type: Spontaneous
  Country: US (occurrence: US)
  Receive Date: 20150130
  Receipt Date: 20150130
  Transmission Date: 20150721
  Serious: Yes (Other)
  Sender: FDA-Public Use
  Company Number: US-ASTRAZENECA-2015SE07575

PATIENT
  Age: 677 Month
  Sex: Male
  Weight: 68 kg

DRUGS (1)
  1. SYMBICORT [Suspect]
     Active Substance: BUDESONIDE\FORMOTEROL FUMARATE DIHYDRATE
     Indication: BRONCHITIS
     Dosage: 160/4.5 UG 2 PUFFS TWO TIMES A DAY
     Route: 055
     Dates: start: 2010

REACTIONS (16)
  - Oral disorder [Unknown]
  - Tongue injury [Unknown]
  - Tuberculosis [Unknown]
  - Body height decreased [Unknown]
  - Abdominal discomfort [Unknown]
  - Bronchial oedema [Unknown]
  - Cough [Unknown]
  - Fungal infection [Unknown]
  - Dyspnoea [Not Recovered/Not Resolved]
  - Joint dislocation [Unknown]
  - Product use issue [Unknown]
  - Drug ineffective for unapproved indication [Unknown]
  - Rhinorrhoea [Unknown]
  - Productive cough [Unknown]
  - Sleep disorder [Unknown]
  - Drug dose omission [Unknown]

NARRATIVE: CASE EVENT DATE: 201108
